FAERS Safety Report 4399894-8 (Version None)
Quarter: 2004Q3

REPORT INFORMATION
  Report Type: 
  Country: None (occurrence: None)
  Receive Date: 20040714
  Receipt Date: 20040628
  Transmission Date: 20050211
  Serious: Yes (Other)
  Sender: FDA-Public Use
  Company Number: AU_040607876

PATIENT
  Age: 63 Year
  Sex: Female

DRUGS (3)
  1. EVISTA [Suspect]
     Indication: OSTEOPENIA
     Dosage: 60 MG/1 DAY
  2. AVAPRO [Concomitant]
  3. ASPIRIN [Concomitant]

REACTIONS (2)
  - BONE DENSITY DECREASED [None]
  - BREAST CANCER FEMALE [None]
